FAERS Safety Report 23445800 (Version 1)
Quarter: 2024Q1

REPORT INFORMATION
  Report Type: Report from Study
  Country: BE (occurrence: BE)
  Receive Date: 20240126
  Receipt Date: 20240126
  Transmission Date: 20240409
  Serious: Yes (Hospitalization, Other)
  Sender: FDA-Public Use
  Company Number: BE-ABBVIE-5589597

PATIENT
  Age: 77 Year
  Sex: Female

DRUGS (10)
  1. CARBIDOPA\LEVODOPA [Suspect]
     Active Substance: CARBIDOPA\LEVODOPA
     Indication: Parkinson^s disease
     Dosage: ED: 1.5 ML, CND: 1.5 ML/H DURING 24 HOURS
     Route: 050
     Dates: start: 20240105
  2. CARBIDOPA\LEVODOPA [Suspect]
     Active Substance: CARBIDOPA\LEVODOPA
     Route: 050
     Dates: start: 20200706
  3. CARBIDOPA\LEVODOPA [Suspect]
     Active Substance: CARBIDOPA\LEVODOPA
     Dosage: MD: 5.0 ML, CD: 3.0 ML/H, ED: 1.5 ML DURING 24 HOURS
     Route: 050
     Dates: start: 20240105, end: 20240105
  4. CARBIDOPA\LEVODOPA [Suspect]
     Active Substance: CARBIDOPA\LEVODOPA
     Dosage: MD: 9.2 ML, CD: 3.0 ML/H, ED: 1.9 ML DURING 16 HOURS
     Route: 050
     Dates: start: 20230927, end: 20240105
  5. PRAMIPEXOLE [Concomitant]
     Active Substance: PRAMIPEXOLE\PRAMIPEXOLE DIHYDROCHLORIDE
     Indication: Product used for unknown indication
     Dosage: FORM STRENGTH: 1.05 UNKNOWN, FREQUENCY IN THE EVENING
  6. BENSERAZIDE\LEVODOPA [Concomitant]
     Active Substance: BENSERAZIDE\LEVODOPA
     Indication: Parkinson^s disease
     Dosage: 125 MG 1 TABLET?AT BEDTIME
  7. AMANTADINE [Concomitant]
     Active Substance: AMANTADINE
     Indication: Product used for unknown indication
     Dosage: FORM STRENGTH: 100 MILLIGRAM IN THE MORNING AND IN THE EVENING
  8. BENSERAZIDE\LEVODOPA [Concomitant]
     Active Substance: BENSERAZIDE\LEVODOPA
     Indication: Product used for unknown indication
     Dosage: FORM STRENGTH: 250 UNKNOWN, FREQUENCY 07.00, 12.00
  9. BENSERAZIDE\LEVODOPA [Concomitant]
     Active Substance: BENSERAZIDE\LEVODOPA
     Indication: Product used for unknown indication
     Dosage: FORM STRENGTH: 250 UNKNOWN, FREQUENCY 18.00
  10. MEDROL [Concomitant]
     Active Substance: METHYLPREDNISOLONE
     Indication: Product used for unknown indication

REACTIONS (6)
  - Hospitalisation [Not Recovered/Not Resolved]
  - Agitation [Unknown]
  - Freezing phenomenon [Unknown]
  - Aggression [Unknown]
  - Visual impairment [Recovering/Resolving]
  - Giant cell arteritis [Unknown]

NARRATIVE: CASE EVENT DATE: 20240101
